FAERS Safety Report 6315578-0 (Version None)
Quarter: 2009Q3

REPORT INFORMATION
  Report Type: 
  Country: None (occurrence: None)
  Receive Date: 20090818
  Receipt Date: 20090807
  Transmission Date: 20100115
  Serious: Yes (Other)
  Sender: FDA-Public Use
  Company Number: 2009AL005137

PATIENT
  Age: 52 Year
  Sex: Female

DRUGS (10)
  1. CLINDAMYCIN PHOSPHATE [Suspect]
     Indication: POSTOPERATIVE CARE
     Dosage: 600 MG, IV
     Route: 042
     Dates: start: 20090707, end: 20090708
  2. ACETAMINOPHEN AND CODEINE PHOSPHATE [Suspect]
     Dosage: ORAL SOLUTION
     Route: 048
  3. PAREGORIC LIQUID USP (ALPHARMA) (PAREGORIC LIQUID USP (ALPHARMA) [Suspect]
     Indication: PAIN
     Dosage: 20 MG, QID; PO
     Route: 048
     Dates: start: 20090704, end: 20090708
  4. BISOPROLOL [Concomitant]
  5. CHLORPHENIRAMINE MALEATE [Concomitant]
  6. CITALOPRAM HYDROBROMIDE [Concomitant]
  7. DICLOFENAC [Concomitant]
  8. FERROUS FUMARATE [Concomitant]
  9. SENNA [Concomitant]
  10. SIMVASTATIN [Concomitant]

REACTIONS (1)
  - STEVENS-JOHNSON SYNDROME [None]
